FAERS Safety Report 20740398 (Version 1)
Quarter: 2022Q2

REPORT INFORMATION
  Report Type: Spontaneous
  Country: US (occurrence: US)
  Receive Date: 20220422
  Receipt Date: 20220422
  Transmission Date: 20220721
  Serious: Yes (Other)
  Sender: FDA-Public Use
  Company Number: US-BAYER-2022A053982

PATIENT
  Age: 84 Year
  Sex: Female

DRUGS (3)
  1. ADEMPAS [Suspect]
     Active Substance: RIOCIGUAT
     Dosage: UNK
     Dates: start: 20220401, end: 20220401
  2. SELEXIPAG [Suspect]
     Active Substance: SELEXIPAG
     Indication: Pulmonary arterial hypertension
     Dosage: 200 ?G, BID
     Route: 048
     Dates: start: 2019
  3. MACITENTAN [Concomitant]
     Active Substance: MACITENTAN
     Indication: Pulmonary arterial hypertension
     Dosage: 10 MG, QD
     Dates: start: 2018

REACTIONS (5)
  - Blood pressure decreased [Recovered/Resolved]
  - Vision blurred [None]
  - Weight decreased [Not Recovered/Not Resolved]
  - Decreased appetite [Not Recovered/Not Resolved]
  - Diarrhoea [Not Recovered/Not Resolved]

NARRATIVE: CASE EVENT DATE: 20220401
